FAERS Safety Report 21048901 (Version 1)
Quarter: 2022Q3

REPORT INFORMATION
  Report Type: Spontaneous
  Country: US (occurrence: US)
  Receive Date: 20220706
  Receipt Date: 20220706
  Transmission Date: 20221026
  Serious: No
  Sender: FDA-Public Use
  Company Number: US-PFIZER INC-202200920930

PATIENT
  Age: 68 Year
  Sex: Female

DRUGS (3)
  1. PAXLOVID [Suspect]
     Active Substance: NIRMATRELVIR\RITONAVIR
     Indication: COVID-19 treatment
     Dosage: UNK
     Dates: start: 20220607, end: 20220608
  2. SYNTHROID [Concomitant]
     Active Substance: LEVOTHYROXINE SODIUM
     Dosage: UNK
     Dates: start: 202101
  3. METHENAMINE [Concomitant]
     Active Substance: METHENAMINE
     Dosage: UNK
     Dates: start: 20220623, end: 20220627

REACTIONS (1)
  - Dysgeusia [Recovered/Resolved]
